FAERS Safety Report 14087056 (Version 1)
Quarter: 2017Q4

REPORT INFORMATION
  Report Type: Spontaneous
  Country: US (occurrence: US)
  Receive Date: 20171013
  Receipt Date: 20171013
  Transmission Date: 20180321
  Serious: Yes (Other)
  Sender: FDA-Public Use
  Company Number: US-JNJFOC-20171012134

PATIENT
  Sex: Female

DRUGS (1)
  1. IMBRUVICA [Suspect]
     Active Substance: IBRUTINIB
     Indication: CHRONIC LYMPHOCYTIC LEUKAEMIA
     Route: 048
     Dates: start: 201707, end: 2017

REACTIONS (6)
  - Liver disorder [Unknown]
  - Incorrect dose administered [Unknown]
  - Ventricular fibrillation [Unknown]
  - Tumour lysis syndrome [Unknown]
  - Protein total increased [Unknown]
  - Off label use [Unknown]

NARRATIVE: CASE EVENT DATE: 2017
